FAERS Safety Report 8490027-5 (Version None)
Quarter: 2012Q3

REPORT INFORMATION
  Report Type: 
  Country: None (occurrence: None)
  Receive Date: 20120705
  Receipt Date: 20120702
  Transmission Date: 20120928
  Serious: Yes (Death)
  Sender: FDA-Public Use
  Company Number: US-JNJFOC-20120610271

PATIENT

DRUGS (32)
  1. DOXORUBICIN HCL [Suspect]
     Indication: BURKITT'S LYMPHOMA
     Dosage: ON DAYS 4 AND 5 OF CYCLE 3,5 AND 7
     Route: 042
  2. CYCLOPHOSPHAMIDE [Suspect]
     Dosage: DAYS 1-5 DURING CYCLE 3,5 AND 7
     Route: 042
  3. METHOTREXATE [Suspect]
     Indication: BURKITT'S LEUKAEMIA
     Dosage: ON DAY 1 OF CYCLE 3,5 AND 7
     Route: 042
  4. RITUXIMAB [Suspect]
     Dosage: ON DAY 8 FROM CYCLE 3 TO 7
     Route: 042
  5. FILGRASTIM [Concomitant]
     Indication: PROPHYLAXIS
     Dosage: 5 MICROGRAM/KG/DAY FROM DAY 7 OF EACH CYCLE UNTIL THE ABSOLUTE NEUTROPHIL COUNT HAD RECOVERED
     Route: 058
  6. METHOTREXATE [Suspect]
     Indication: BURKITT'S LYMPHOMA
     Dosage: ON DAY 1 OF CYCLE 2,4 AND 6
     Route: 042
  7. DEXAMETHASONE SODIUM PHOSPHATE [Suspect]
     Indication: BURKITT'S LYMPHOMA
     Dosage: ON DAYS 1-5 OF CYCLE 3,5 AND 7
     Route: 042
  8. DEXAMETHASONE SODIUM PHOSPHATE [Suspect]
     Dosage: ON DAYS 1-5 OF CYCLE 2,4 AND 6
     Route: 042
  9. RITUXIMAB [Suspect]
     Indication: BURKITT'S LYMPHOMA
     Dosage: DAY 8 ON CYCLE 2; DOAGE INCREASED TO 375 MG/M2 ON DAY 10 AND 12
     Route: 042
  10. CYCLOPHOSPHAMIDE [Suspect]
     Indication: BURKITT'S LYMPHOMA
     Dosage: FOR 5 DAYS IN CYCLE 1
     Route: 042
  11. VINCRISTINE [Suspect]
     Indication: BURKITT'S LYMPHOMA
     Dosage: ON DAY 1 OF CYCLE 3,5 AND 7
     Route: 042
  12. DEXAMETHASONE SODIUM PHOSPHATE [Suspect]
     Dosage: ON DAYS 1-5 OF CYCLE 2,4 AND 6
     Route: 042
  13. CYCLOPHOSPHAMIDE [Suspect]
     Indication: BURKITT'S LEUKAEMIA
     Dosage: FOR 5 DAYS IN CYCLE 1
     Route: 042
  14. VINCRISTINE [Suspect]
     Dosage: ON DAY 1 OF CYCLE 2,4 AND 6
     Route: 042
  15. VINCRISTINE [Suspect]
     Indication: BURKITT'S LEUKAEMIA
     Dosage: ON DAY 1 OF CYCLE 2,4 AND 6
     Route: 042
  16. CYTARABINE [Suspect]
     Indication: BURKITT'S LEUKAEMIA
     Dosage: ON DAYS 4 AND 5 OF CYCLE 2,4 AND 6
     Route: 042
  17. RITUXIMAB [Suspect]
     Indication: BURKITT'S LEUKAEMIA
     Dosage: DAY 8 ON CYCLE 2; DOAGE INCREASED TO 375 MG/M2 ON DAY 10 AND 12
     Route: 042
  18. RITUXIMAB [Suspect]
     Dosage: ON DAY 8 FROM CYCLE 3 TO 7
     Route: 042
  19. CYCLOPHOSPHAMIDE [Suspect]
     Dosage: DAYS 1-5 DURING CYCLE 3,5 AND 7
     Route: 042
  20. IFOSFAMIDE [Suspect]
     Indication: BURKITT'S LYMPHOMA
     Dosage: ON DAYS 1-5 IN CYCLE 2,4 AND 6
     Route: 042
  21. IFOSFAMIDE [Suspect]
     Indication: BURKITT'S LEUKAEMIA
     Dosage: ON DAYS 1-5 IN CYCLE 2,4 AND 6
     Route: 042
  22. METHOTREXATE [Suspect]
     Dosage: ON DAY 1 OF CYCLE 3,5 AND 7
     Route: 042
  23. METHOTREXATE [Suspect]
     Dosage: ON DAY 1 OF CYCLE 2,4 AND 6
     Route: 042
  24. ETOPOSIDE [Suspect]
     Indication: BURKITT'S LEUKAEMIA
     Dosage: ON DAYS 4 AND 5 OF CYCLE 2,4 AND 6
     Route: 042
  25. DOXORUBICIN HCL [Suspect]
     Indication: BURKITT'S LEUKAEMIA
     Dosage: ON DAYS 4 AND 5 OF CYCLE 3,5 AND 7
     Route: 042
  26. PREDNISONE [Suspect]
     Indication: BURKITT'S LYMPHOMA
     Dosage: FOR 7 DAYS IN CYCLE 1
     Route: 065
  27. ETOPOSIDE [Suspect]
     Indication: BURKITT'S LYMPHOMA
     Dosage: ON DAYS 4 AND 5 OF CYCLE 2,4 AND 6
     Route: 042
  28. DEXAMETHASONE SODIUM PHOSPHATE [Suspect]
     Indication: BURKITT'S LEUKAEMIA
     Dosage: ON DAYS 1-5 OF CYCLE 3,5 AND 7
     Route: 042
  29. PREDNISONE [Suspect]
     Indication: BURKITT'S LEUKAEMIA
     Dosage: FOR 7 DAYS IN CYCLE 1
     Route: 065
  30. VINCRISTINE [Suspect]
     Dosage: ON DAY 1 OF CYCLE 3,5 AND 7
     Route: 042
  31. CYTARABINE [Suspect]
     Indication: BURKITT'S LYMPHOMA
     Dosage: ON DAYS 4 AND 5 OF CYCLE 2,4 AND 6
     Route: 042
  32. LEUCOVORIN CALCIUM [Concomitant]
     Indication: PROPHYLAXIS
     Route: 042

REACTIONS (1)
  - CENTRAL NERVOUS SYSTEM HAEMORRHAGE [None]
